FAERS Safety Report 4354799-3 (Version None)
Quarter: 2004Q2

REPORT INFORMATION
  Report Type: 
  Country: None (occurrence: None)
  Receive Date: 20040507
  Receipt Date: 20040429
  Transmission Date: 20050107
  Serious: Yes (Other)
  Sender: FDA-Public Use
  Company Number: PHEH2004US04803

PATIENT
  Sex: Female

DRUGS (1)
  1. AREDIA [Suspect]
     Indication: MULTIPLE MYELOMA
     Dosage: UNK/UNK

REACTIONS (3)
  - JAW FRACTURE [None]
  - ORAL SURGERY [None]
  - OSTEOLYSIS [None]
